FAERS Safety Report 25678348 (Version 2)
Quarter: 2025Q4

REPORT INFORMATION
  Report Type: Report from Study
  Country: US (occurrence: US)
  Receive Date: 20250813
  Receipt Date: 20251017
  Transmission Date: 20260118
  Serious: Yes (Death, Hospitalization)
  Sender: ABBVIE
  Company Number: US-ABBVIE-6411231

PATIENT
  Age: 86 Year
  Sex: Female

DRUGS (1)
  1. HUMIRA [Suspect]
     Active Substance: ADALIMUMAB
     Indication: Rheumatoid arthritis
     Dosage: CITRATE FREE?SOLUTION FOR INJECTION IN PRE-FILLED PEN
     Route: 058
     Dates: start: 20240822, end: 20250519

REACTIONS (3)
  - Death [Fatal]
  - Infected skin ulcer [Unknown]
  - Decubitus ulcer [Unknown]

NARRATIVE: CASE EVENT DATE: 20250723
